FAERS Safety Report 5711543-2 (Version None)
Quarter: 2008Q2

REPORT INFORMATION
  Report Type: 
  Country: None (occurrence: None)
  Receive Date: 20080418
  Receipt Date: 20080418
  Transmission Date: 20081010
  Serious: Yes (Death, Hospitalization, Other)
  Sender: FDA-Public Use
  Company Number: None

PATIENT
  Sex: Female
  Weight: 49.8957 kg

DRUGS (2)
  1. CELLCEPT [Suspect]
     Indication: LUNG TRANSPLANT
     Dosage: 1 BID PO
     Route: 048
     Dates: start: 20040201, end: 20071217
  2. MYFORTIC [Suspect]
     Indication: LUNG TRANSPLANT
     Dosage: 2 BID PO
     Route: 048
     Dates: start: 20071201, end: 20080210

REACTIONS (3)
  - GENERAL PHYSICAL HEALTH DETERIORATION [None]
  - LUNG TRANSPLANT REJECTION [None]
  - PROGRESSIVE MULTIFOCAL LEUKOENCEPHALOPATHY [None]
